FAERS Safety Report 25407593 (Version 8)
Quarter: 2025Q4

REPORT INFORMATION
  Report Type: Spontaneous
  Country: CN (occurrence: CN)
  Receive Date: 20250606
  Receipt Date: 20251103
  Transmission Date: 20260117
  Serious: Yes (Death, Life-Threatening, Hospitalization, Other)
  Sender: PFIZER
  Company Number: CN-PFIZER INC-202500115203

PATIENT
  Age: 42 Year
  Sex: Male
  Weight: 75 kg

DRUGS (15)
  1. LORBRENA [Suspect]
     Active Substance: LORLATINIB
     Indication: Lung adenocarcinoma stage III
     Dosage: 100 MG, 1X/DAY
     Route: 048
     Dates: start: 20250220, end: 20250524
  2. OLANZAPINE [Suspect]
     Active Substance: OLANZAPINE
     Indication: Insomnia
     Dosage: 10 MG, 1X/DAY
     Route: 048
     Dates: start: 20250210
  3. OLANZAPINE [Suspect]
     Active Substance: OLANZAPINE
     Dosage: HALF A PILL BEFORE BEDTIME, ONE PILL IF NOT EFFECTIVE
  4. ESZOPICLONE [Suspect]
     Active Substance: ESZOPICLONE
     Indication: Insomnia
     Dosage: UNK
     Route: 048
     Dates: start: 20250210
  5. ESZOPICLONE [Suspect]
     Active Substance: ESZOPICLONE
     Dosage: 3 MG, QN
     Route: 048
     Dates: start: 20250417
  6. CRESTOR [Concomitant]
     Active Substance: ROSUVASTATIN CALCIUM
     Dosage: UNK
     Route: 048
  7. CRESTOR [Concomitant]
     Active Substance: ROSUVASTATIN CALCIUM
     Dosage: 10 MG, 1X/DAY
     Route: 048
     Dates: start: 20250417
  8. ESCITALOPRAM OXALATE [Concomitant]
     Active Substance: ESCITALOPRAM OXALATE
     Dosage: 1 DF (TAB) IN THE MORNING
     Route: 048
     Dates: start: 20250210, end: 20250220
  9. FEI LI KE [Concomitant]
     Dosage: 20 ML, 3X/DAY
     Route: 048
     Dates: start: 20250210
  10. FU FANG HONG DOU SHAN [Concomitant]
     Dosage: 0.6 G, 3X/DAY
     Route: 048
     Dates: start: 20250417
  11. LIDOCAINE HYDROCHLORIDE [Concomitant]
     Active Substance: LIDOCAINE HYDROCHLORIDE
     Dosage: 1 DF
  12. SODIUM CHLORIDE [Concomitant]
     Active Substance: SODIUM CHLORIDE
     Dosage: 1 DF
  13. DEXTROMETHORPHAN HYDROBROMIDE AND GUAIFENESIN [Concomitant]
     Active Substance: DEXTROMETHORPHAN HYDROBROMIDE\GUAIFENESIN
     Dosage: 20 ML, 3X/DAY
     Route: 048
  14. ROSUVASTATIN CALCIUM [Concomitant]
     Active Substance: ROSUVASTATIN CALCIUM
     Dosage: 10 MG, 1X/DAY
     Route: 048
  15. CALCIUM CARBONATE\CHOLECALCIFEROL [Concomitant]
     Active Substance: CALCIUM CARBONATE\CHOLECALCIFEROL
     Dosage: 1 DF, 1X/DAY

REACTIONS (14)
  - Completed suicide [Fatal]
  - Anxiety [Fatal]
  - Depression [Fatal]
  - Nervous system disorder [Fatal]
  - Suicide attempt [Unknown]
  - Delirium [Unknown]
  - Asthenia [Unknown]
  - Tic [Unknown]
  - Lipids increased [Unknown]
  - Mental status changes [Unknown]
  - Confusional state [Unknown]
  - Insomnia [Unknown]
  - Feeling abnormal [Unknown]
  - Depressed mood [Unknown]

NARRATIVE: CASE EVENT DATE: 20250101
